FAERS Safety Report 25074017 (Version 1)
Quarter: 2025Q1

REPORT INFORMATION
  Report Type: Spontaneous
  Country: US (occurrence: US)
  Receive Date: 20250313
  Receipt Date: 20250313
  Transmission Date: 20250409
  Serious: Yes (Hospitalization)
  Sender: TEVA
  Company Number: US-TEVA-VS-3305938

PATIENT
  Age: 61 Year
  Sex: Male

DRUGS (2)
  1. CLONAZEPAM [Suspect]
     Active Substance: CLONAZEPAM
     Indication: Product used for unknown indication
     Route: 065
  2. Analgesic cream [Concomitant]
     Indication: Product used for unknown indication

REACTIONS (5)
  - Agitation [Recovered/Resolved]
  - Nystagmus [Recovered/Resolved]
  - Hyperhidrosis [Unknown]
  - Sinus tachycardia [Unknown]
  - Impaired driving ability [Unknown]
